FAERS Safety Report 24531991 (Version 1)
Quarter: 2024Q4

REPORT INFORMATION
  Report Type: Spontaneous
  Country: AT (occurrence: AT)
  Receive Date: 20241022
  Receipt Date: 20241022
  Transmission Date: 20250114
  Serious: Yes (Other)
  Sender: ACCORD
  Company Number: None

PATIENT
  Age: 62 Year
  Sex: Female

DRUGS (2)
  1. ATORVASTATIN [Interacting]
     Active Substance: ATORVASTATIN
     Indication: Product used for unknown indication
     Dosage: 10 MG
     Dates: start: 202402, end: 202407
  2. INCLISIRAN [Interacting]
     Active Substance: INCLISIRAN
     Indication: Lipoprotein (a) increased
     Dosage: STRENGTH: 284 MG, SOLUTION FOR INJECTION IN A PRE-FILLED SYRINGE
     Dates: start: 20240510

REACTIONS (6)
  - Dizziness [Recovering/Resolving]
  - Back pain [Recovering/Resolving]
  - Adverse reaction [Recovering/Resolving]
  - Impaired healing [Recovering/Resolving]
  - Inflammation [Recovering/Resolving]
  - Uterine haemorrhage [Recovering/Resolving]

NARRATIVE: CASE EVENT DATE: 20240101
